FAERS Safety Report 5691805-8 (Version None)
Quarter: 2008Q2

REPORT INFORMATION
  Report Type: 
  Country: None (occurrence: None)
  Receive Date: 20080402
  Receipt Date: 20080325
  Transmission Date: 20081010
  Serious: Yes (Hospitalization)
  Sender: FDA-Public Use
  Company Number: PHHY2008JP03905

PATIENT
  Age: 9 Year
  Sex: Male

DRUGS (1)
  1. VOLTAREN [Suspect]
     Indication: ANTIPYRESIS
     Dosage: 12.5 MG/DAY
     Route: 054
     Dates: start: 20080131, end: 20080201

REACTIONS (1)
  - INTERSTITIAL LUNG DISEASE [None]
